FAERS Safety Report 5228927-1 (Version None)
Quarter: 2007Q1

REPORT INFORMATION
  Report Type: 
  Country: None (occurrence: None)
  Receive Date: 20070205
  Receipt Date: 20070130
  Transmission Date: 20070707
  Serious: Yes (Life-Threatening)
  Sender: FDA-Public Use
  Company Number: 2007AP00485

PATIENT
  Age: 29814 Day
  Sex: Female
  Weight: 45 kg

DRUGS (4)
  1. XYLOCAINE [Suspect]
     Indication: LOCAL ANAESTHESIA
     Route: 049
     Dates: start: 20070115, end: 20070115
  2. CERCINE [Suspect]
     Dates: start: 20070115, end: 20070115
  3. PHENOBARBITAL TAB [Suspect]
     Dates: start: 20070115, end: 20070115
  4. UNASYN [Concomitant]
     Dates: end: 20070115

REACTIONS (4)
  - ANAPHYLACTIC SHOCK [None]
  - CARDIOGENIC SHOCK [None]
  - OVERDOSE [None]
  - VENTRICULAR FIBRILLATION [None]
